FAERS Safety Report 24613237 (Version 2)
Quarter: 2024Q4

REPORT INFORMATION
  Report Type: Spontaneous
  Country: IL (occurrence: IL)
  Receive Date: 20241113
  Receipt Date: 20241119
  Transmission Date: 20250114
  Serious: No
  Sender: BAXTER
  Company Number: IL-BAXTER-2024BAX027536

PATIENT
  Age: 46 Year
  Sex: Male

DRUGS (14)
  1. AMINO ACIDS\DEXTROSE\ELECTROLYTES NOS\SOYBEAN OIL [Suspect]
     Active Substance: AMINO ACIDS\DEXTROSE\ELECTROLYTES NOS\SOYBEAN OIL
     Dosage: UNK
     Route: 065
  2. AMINO ACIDS\DEXTROSE\ELECTROLYTES NOS\SOYBEAN OIL [Suspect]
     Active Substance: AMINO ACIDS\DEXTROSE\ELECTROLYTES NOS\SOYBEAN OIL
     Dosage: UNK
     Route: 065
  3. AMINO ACIDS\DEXTROSE\ELECTROLYTES NOS\SOYBEAN OIL [Suspect]
     Active Substance: AMINO ACIDS\DEXTROSE\ELECTROLYTES NOS\SOYBEAN OIL
     Dosage: UNK
     Route: 065
  4. CERNEVIT [Suspect]
     Active Substance: VITAMINS
     Dosage: UNK
     Route: 065
  5. CERNEVIT [Suspect]
     Active Substance: VITAMINS
     Dosage: UNK
     Route: 065
  6. CERNEVIT [Suspect]
     Active Substance: VITAMINS
     Dosage: UNK
     Route: 065
  7. IRON\MINERALS\POTASSIUM IOD\SODIUM FLUORIDE\SODIUM MOLYBDATE\SODIUM SE [Suspect]
     Active Substance: IRON\MINERALS\POTASSIUM IOD\SODIUM FLUORIDE\SODIUM MOLYBDATE\SODIUM SELENITE\ZINC
     Dosage: UNK
     Route: 065
  8. IRON\MINERALS\POTASSIUM IOD\SODIUM FLUORIDE\SODIUM MOLYBDATE\SODIUM SE [Suspect]
     Active Substance: IRON\MINERALS\POTASSIUM IOD\SODIUM FLUORIDE\SODIUM MOLYBDATE\SODIUM SELENITE\ZINC
     Dosage: UNK
     Route: 065
  9. IRON\MINERALS\POTASSIUM IOD\SODIUM FLUORIDE\SODIUM MOLYBDATE\SODIUM SE [Suspect]
     Active Substance: IRON\MINERALS\POTASSIUM IOD\SODIUM FLUORIDE\SODIUM MOLYBDATE\SODIUM SELENITE\ZINC
     Dosage: UNK
     Route: 065
  10. IRON\MINERALS\POTASSIUM IOD\SODIUM FLUORIDE\SODIUM MOLYBDATE\SODIUM SE [Suspect]
     Active Substance: IRON\MINERALS\POTASSIUM IOD\SODIUM FLUORIDE\SODIUM MOLYBDATE\SODIUM SELENITE\ZINC
     Dosage: UNK
     Route: 065
  11. KONAKION [Suspect]
     Active Substance: PHYTONADIONE
     Dosage: UNK
     Route: 065
  12. KONAKION [Suspect]
     Active Substance: PHYTONADIONE
     Dosage: UNK
     Route: 065
  13. KONAKION [Suspect]
     Active Substance: PHYTONADIONE
     Dosage: UNK
     Route: 065
  14. VITAMIN K [Suspect]
     Active Substance: PHYTONADIONE
     Dosage: 150 MCG
     Route: 065

REACTIONS (2)
  - Pyrexia [Recovered/Resolved]
  - Chills [Recovered/Resolved]
